FAERS Safety Report 10642648 (Version 14)
Quarter: 2016Q2

REPORT INFORMATION
  Report Type: Report from Study
  Country: IT (occurrence: IT)
  Receive Date: 20141210
  Receipt Date: 20160628
  Transmission Date: 20160815
  Serious: Yes (Hospitalization)
  Sender: FDA-Public Use
  Company Number: IT-ROCHE-1426714

PATIENT
  Age: 80 Year
  Sex: Male
  Weight: 78 kg

DRUGS (32)
  1. OBINUTUZUMAB [Suspect]
     Active Substance: OBINUTUZUMAB
     Indication: DIFFUSE LARGE B-CELL LYMPHOMA
     Dosage: DATE OF LAST DOSE (VOLUME: 250 ML AND DOSE CONCENTRATION: 4 MG/ML) PRIOR TO EVENT ONSET: 18/JUN/2014
     Route: 042
     Dates: start: 20140327
  2. BACTRIM [Concomitant]
     Active Substance: SULFAMETHOXAZOLE\TRIMETHOPRIM
     Indication: NEUTROPENIA
     Route: 065
     Dates: end: 20150305
  3. LANSOPRAZOLO [Concomitant]
     Active Substance: LANSOPRAZOLE
     Route: 065
     Dates: start: 20140315
  4. NATEMILLE [Concomitant]
     Route: 065
     Dates: start: 20140812, end: 20150305
  5. PARACETAMOL [Concomitant]
     Active Substance: ACETAMINOPHEN
     Route: 065
     Dates: end: 20140618
  6. ACICLOVIR [Concomitant]
     Active Substance: ACYCLOVIR
     Indication: PREMEDICATION
     Route: 065
     Dates: start: 20140417, end: 20140618
  7. LERCANIDIPINA [Concomitant]
     Active Substance: LERCANIDIPINE
     Indication: HYPERTENSION
     Route: 065
     Dates: start: 2009
  8. INEGY [Concomitant]
     Active Substance: EZETIMIBE\SIMVASTATIN
     Route: 065
     Dates: end: 201406
  9. LASIX [Concomitant]
     Active Substance: FUROSEMIDE
     Route: 065
     Dates: start: 20140726, end: 20150305
  10. LEVOFLOXACINA [Concomitant]
     Active Substance: LEVOFLOXACIN
     Route: 065
     Dates: start: 20140721, end: 20140731
  11. DIFLUCAN [Concomitant]
     Active Substance: FLUCONAZOLE
     Indication: STOMATITIS
     Route: 065
     Dates: start: 20140502, end: 201405
  12. PREDNISONE. [Suspect]
     Active Substance: PREDNISONE
     Indication: DIFFUSE LARGE B-CELL LYMPHOMA
     Dosage: DATE OF LAST DOSE (25MG) PRIOR TO EVENT ONSET: 24/JUN/2014,
     Route: 048
     Dates: start: 20140328
  13. BENTELAN [Concomitant]
     Active Substance: BETAMETHASONE SODIUM PHOSPHATE
     Indication: PREMEDICATION
     Route: 065
     Dates: start: 20140327, end: 20140618
  14. VINCRISTINE [Suspect]
     Active Substance: VINCRISTINE
     Indication: DIFFUSE LARGE B-CELL LYMPHOMA
     Dosage: DATE OF LAST DOSE (2 MG) PRIOR TO EVENT ONSET: 18/JUN/2014.
     Route: 040
     Dates: start: 20140328
  15. ALLOPURINOL. [Concomitant]
     Active Substance: ALLOPURINOL
     Indication: BLOOD URIC ACID
     Route: 065
     Dates: start: 20150305, end: 20150305
  16. SIMVASTATINA [Concomitant]
     Active Substance: SIMVASTATIN
     Indication: BLOOD CHOLESTEROL
     Route: 065
     Dates: start: 2009
  17. TRIMETON (ITALY) [Concomitant]
     Indication: PREMEDICATION
     Route: 065
     Dates: start: 20140327, end: 20140618
  18. ACICLOVIR [Concomitant]
     Active Substance: ACYCLOVIR
     Route: 065
     Dates: end: 20150305
  19. EPOETIN ALFA [Concomitant]
     Active Substance: ERYTHROPOIETIN
     Indication: ANAEMIA
     Route: 065
     Dates: start: 20140515, end: 20140710
  20. COTAREG [Concomitant]
     Active Substance: HYDROCHLOROTHIAZIDE\VALSARTAN
     Indication: HYPERTENSION
     Route: 065
     Dates: end: 201407
  21. BROMAZEPAN [Concomitant]
     Route: 065
     Dates: start: 20140721, end: 20150305
  22. TORADOL [Concomitant]
     Active Substance: KETOROLAC TROMETHAMINE
     Route: 065
     Dates: start: 20140721, end: 20140726
  23. ONDANSETRON [Concomitant]
     Active Substance: ONDANSETRON
     Route: 065
     Dates: start: 20140327, end: 20140618
  24. DOXORUBICIN [Suspect]
     Active Substance: DOXORUBICIN
     Indication: DIFFUSE LARGE B-CELL LYMPHOMA
     Dosage: DATE OF LAST DOSE (95.5 MG) PRIOR TO EVENT ONSET: 18/JUN/2014
     Route: 042
     Dates: start: 20140328
  25. VALSARTAN. [Concomitant]
     Active Substance: VALSARTAN
     Indication: HYPERTENSION
     Route: 065
     Dates: start: 2009
  26. BACTRIM [Concomitant]
     Active Substance: SULFAMETHOXAZOLE\TRIMETHOPRIM
     Indication: PREMEDICATION
     Route: 065
     Dates: start: 20140417, end: 20140618
  27. BACTRIM [Concomitant]
     Active Substance: SULFAMETHOXAZOLE\TRIMETHOPRIM
     Route: 065
     Dates: start: 20140627, end: 20140701
  28. CLEXANE [Concomitant]
     Active Substance: ENOXAPARIN SODIUM
     Route: 065
     Dates: start: 20140727, end: 20140827
  29. CYCLOPHOSPHAMIDE. [Suspect]
     Active Substance: CYCLOPHOSPHAMIDE
     Indication: DIFFUSE LARGE B-CELL LYMPHOMA
     Dosage: DATE OF LAST DOSE (1433 MG) PRIOR TO EVENT ONSET: 18/JUN/2014
     Route: 042
     Dates: start: 20140328
  30. ALLOPURINOL. [Concomitant]
     Active Substance: ALLOPURINOL
     Indication: PROPHYLAXIS
     Route: 065
     Dates: start: 2009
  31. CALCITRIOL. [Concomitant]
     Active Substance: CALCITRIOL
     Indication: RENAL OSTEODYSTROPHY
     Route: 065
     Dates: start: 20140311
  32. PARACETAMOL [Concomitant]
     Active Substance: ACETAMINOPHEN
     Indication: PREMEDICATION
     Route: 065
     Dates: start: 20140327, end: 20140327

REACTIONS (6)
  - Diarrhoea [Recovered/Resolved]
  - Atrial fibrillation [Recovered/Resolved]
  - Diarrhoea [Recovered/Resolved]
  - Neutropenia [Recovered/Resolved]
  - Hypertensive heart disease [Recovered/Resolved]
  - Abdominal pain [Recovered/Resolved]

NARRATIVE: CASE EVENT DATE: 20140626
